FAERS Safety Report 4338873-3 (Version None)
Quarter: 2004Q2

REPORT INFORMATION
  Report Type: 
  Country: None (occurrence: None)
  Receive Date: 20040409
  Receipt Date: 20040329
  Transmission Date: 20050107
  Serious: Yes (Hospitalization)
  Sender: FDA-Public Use
  Company Number: A044-002-004886

PATIENT
  Age: 76 Year
  Sex: Female
  Weight: 60 kg

DRUGS (6)
  1. ARICEPT [Suspect]
     Indication: DEMENTIA
     Dosage: 10 MG, 1 IN 1 D, ORAL
     Route: 048
     Dates: start: 20031006, end: 20031017
  2. ATENOLOL [Suspect]
     Indication: MYOCARDIAL INFARCTION
     Dosage: 50 MG, ORAL
     Route: 048
  3. DILTIAZEM CP (DILTIAZEM HYDROCHLORIDE) [Suspect]
     Indication: MYOCARDIAL INFARCTION
     Dosage: 300 MG, ORAL
     Route: 048
     Dates: end: 20031017
  4. NITROGLYCERIN [Concomitant]
  5. AMLODIPINE (AMLODIPINE BESILATE) [Concomitant]
  6. RISPERIDONE [Concomitant]

REACTIONS (6)
  - BRADYCARDIA [None]
  - DRUG INTERACTION [None]
  - FACE INJURY [None]
  - FALL [None]
  - HEAD INJURY [None]
  - SYNCOPE [None]
